FAERS Safety Report 8775725 (Version 2)
Quarter: 2012Q4

REPORT INFORMATION
  Report Type: 
  Country: ES (occurrence: ES)
  Receive Date: 20120910
  Receipt Date: 20120918
  Transmission Date: 20130627
  Serious: Yes (Hospitalization)
  Sender: FDA-Public Use
  Company Number: ES-PFIZER INC-2012220559

PATIENT
  Age: 79 Year
  Sex: Female

DRUGS (6)
  1. ARTILOG [Suspect]
     Indication: ARTHRALGIA
     Dosage: 200 mg, 1x/day
     Route: 048
     Dates: start: 201101, end: 20120108
  2. PANTOPRAZOLE [Suspect]
     Indication: PROPHYLAXIS AGAINST GASTROINTESTINAL ULCER
     Dosage: 40 mg/daily
     Route: 048
     Dates: start: 20111130, end: 20120108
  3. ROSUVASTATIN [Suspect]
     Indication: DYSLIPIDAEMIA
     Dosage: 10 mg/daily
     Route: 048
     Dates: start: 200901, end: 20120108
  4. CLOPIDOGREL [Concomitant]
     Dosage: UNK
     Dates: start: 20111130
  5. CONDROSULF [Concomitant]
     Dosage: 400 mg, UNK
     Dates: start: 20111219
  6. CO-RENITEC [Concomitant]
     Dosage: 20/12.5 mg, UNK
     Dates: start: 2009

REACTIONS (1)
  - Hepatitis cholestatic [Recovered/Resolved]
